FAERS Safety Report 9994918 (Version 1)
Quarter: 2014Q1

REPORT INFORMATION
  Report Type: Spontaneous
  Country: US (occurrence: None)
  Receive Date: 20140307
  Receipt Date: 20140307
  Transmission Date: 20141002
  Serious: Yes (Disabling, Other)
  Sender: FDA-Public Use
  Company Number: None

PATIENT
  Age: 41 Year
  Sex: Female
  Weight: 51.71 kg

DRUGS (1)
  1. DOXYCYCLINE 100MG WATSON LABS [Suspect]
     Indication: SEXUALLY TRANSMITTED DISEASE
     Dates: start: 20140202, end: 20140212

REACTIONS (12)
  - Rash [None]
  - Swelling [None]
  - Chest pain [None]
  - Abdominal pain [None]
  - Weight decreased [None]
  - Nausea [None]
  - Decreased appetite [None]
  - Photosensitivity reaction [None]
  - Pain [None]
  - Anxiety [None]
  - Skin discolouration [None]
  - Feeling hot [None]
